FAERS Safety Report 7042940-3 (Version None)
Quarter: 2010Q4

REPORT INFORMATION
  Report Type: 
  Country: None (occurrence: None)
  Receive Date: 20101013
  Receipt Date: 20100319
  Transmission Date: 20110411
  Serious: No
  Sender: FDA-Public Use
  Company Number: US-ASTRAZENECA-2010SE12180

PATIENT
  Age: 74 Year
  Sex: Female
  Weight: 47.6 kg

DRUGS (5)
  1. SYMBICORT [Suspect]
     Indication: CHRONIC OBSTRUCTIVE PULMONARY DISEASE
     Dosage: 160/4.5 ONE PUFF BID
     Route: 055
     Dates: start: 20091201
  2. CARDIZEM [Concomitant]
  3. COUMADIN [Concomitant]
     Dosage: FOR 20 YEARS
  4. ZOCOR [Concomitant]
  5. BROVANA [Concomitant]
     Indication: CHRONIC OBSTRUCTIVE PULMONARY DISEASE
     Dosage: BID

REACTIONS (5)
  - CHEST DISCOMFORT [None]
  - DRUG INEFFECTIVE [None]
  - DYSPNOEA [None]
  - FATIGUE [None]
  - INTERNATIONAL NORMALISED RATIO INCREASED [None]
